FAERS Safety Report 7571016-1 (Version None)
Quarter: 2011Q2

REPORT INFORMATION
  Report Type: 
  Country: None (occurrence: None)
  Receive Date: 20110624
  Receipt Date: 20110610
  Transmission Date: 20111010
  Serious: Yes (Other)
  Sender: FDA-Public Use
  Company Number: TW-WATSON-2011-09173

PATIENT
  Age: 46 Year
  Sex: Female

DRUGS (4)
  1. VINCRISTINE [Suspect]
     Indication: LYMPHOMA
  2. PREDNISOLONE [Suspect]
     Indication: LYMPHOMA
     Dosage: UNK
  3. DAUNORUBICIN HCL [Suspect]
     Indication: LYMPHOMA
  4. CYCLOPHOSPHAMIDE [Suspect]
     Indication: LYMPHOMA

REACTIONS (1)
  - HAEMATOTOXICITY [None]
